FAERS Safety Report 4914599-X (Version None)
Quarter: 2006Q1

REPORT INFORMATION
  Report Type: 
  Country: None (occurrence: None)
  Receive Date: 20060216
  Receipt Date: 20050802
  Transmission Date: 20060701
  Serious: Yes (Hospitalization)
  Sender: FDA-Public Use
  Company Number: US-MERCK-0508USA00978

PATIENT
  Age: 53 Year
  Sex: Male
  Weight: 166 kg

DRUGS (2)
  1. VIOXX [Suspect]
     Indication: ARTHRITIS
     Route: 048
     Dates: start: 20010401, end: 20030805
  2. VIOXX [Suspect]
     Route: 048
     Dates: start: 20010401, end: 20030805

REACTIONS (14)
  - ARTHRALGIA [None]
  - CATARACT [None]
  - CEREBROVASCULAR ACCIDENT [None]
  - DEEP VEIN THROMBOSIS [None]
  - DIABETES MELLITUS NON-INSULIN-DEPENDENT [None]
  - DIARRHOEA [None]
  - DIZZINESS [None]
  - FATIGUE [None]
  - FIBROMYALGIA [None]
  - HAEMATOMA [None]
  - HYPOAESTHESIA [None]
  - HYPOGLYCAEMIA [None]
  - PULMONARY EMBOLISM [None]
  - SLEEP APNOEA SYNDROME [None]
